FAERS Safety Report 7521026-5 (Version None)
Quarter: 2011Q2

REPORT INFORMATION
  Report Type: 
  Country: None (occurrence: None)
  Receive Date: 20110603
  Receipt Date: 20101202
  Transmission Date: 20111010
  Serious: Yes (Other)
  Sender: FDA-Public Use
  Company Number: CA-BAYER-2010-000436

PATIENT
  Age: 46 Year
  Sex: Female

DRUGS (3)
  1. BIAXIN [Concomitant]
     Indication: VIRAL INFECTION
  2. AVELOX [Suspect]
     Indication: BRONCHITIS
     Dosage: 400 MG, QD
     Route: 048
     Dates: start: 20101201
  3. BIAXIN [Concomitant]
     Indication: BRONCHITIS
     Dosage: UNK
     Dates: start: 20101101, end: 20101101

REACTIONS (3)
  - HERPES VIRUS INFECTION [None]
  - PHARYNGEAL ULCERATION [None]
  - STEVENS-JOHNSON SYNDROME [None]
